FAERS Safety Report 25307149 (Version 1)
Quarter: 2025Q2

REPORT INFORMATION
  Report Type: Spontaneous
  Country: AT (occurrence: AT)
  Receive Date: 20250513
  Receipt Date: 20250513
  Transmission Date: 20250717
  Serious: Yes (Hospitalization, Other)
  Sender: ABBVIE
  Company Number: AT-ABBVIE-6271011

PATIENT
  Age: 33 Year
  Sex: Female

DRUGS (7)
  1. ADALIMUMAB [Suspect]
     Active Substance: ADALIMUMAB
     Indication: Colitis ulcerative
     Dosage: FREQUENCY TEXT: WEEKLY
     Route: 058
  2. ADALIMUMAB [Suspect]
     Active Substance: ADALIMUMAB
     Dosage: FREQUENCY TEXT: DAILY
     Route: 058
     Dates: start: 201905
  3. AZATHIOPRINE [Concomitant]
     Active Substance: AZATHIOPRINE
     Indication: Product used for unknown indication
  4. BUDESONIDE [Concomitant]
     Active Substance: BUDESONIDE
     Indication: Product used for unknown indication
  5. TOFACITINIB [Concomitant]
     Active Substance: TOFACITINIB
     Indication: Product used for unknown indication
  6. MESALAMINE [Concomitant]
     Active Substance: MESALAMINE
     Indication: Product used for unknown indication
  7. PREDNISOLONE [Concomitant]
     Active Substance: PREDNISOLONE
     Indication: Product used for unknown indication
     Route: 042

REACTIONS (20)
  - Colitis ulcerative [Unknown]
  - Hypochromic anaemia [Unknown]
  - Faecal calprotectin increased [Unknown]
  - Pyrexia [Unknown]
  - Abdominal pain [Unknown]
  - Diarrhoea haemorrhagic [Unknown]
  - Oral candidiasis [Unknown]
  - Ulcer [Unknown]
  - Frequent bowel movements [Unknown]
  - Colitis ulcerative [Unknown]
  - Acute haemorrhagic ulcerative colitis [Unknown]
  - Therapeutic product effect decreased [Unknown]
  - General physical health deterioration [Unknown]
  - Acute haemorrhagic ulcerative colitis [Unknown]
  - Gastrointestinal scarring [Unknown]
  - Drug specific antibody present [Unknown]
  - Drug ineffective [Unknown]
  - C-reactive protein increased [Unknown]
  - Haematochezia [Unknown]
  - Intestinal mucosal atrophy [Unknown]

NARRATIVE: CASE EVENT DATE: 20190101
